FAERS Safety Report 9984619 (Version 2)
Quarter: 2014Q2

REPORT INFORMATION
  Report Type: Spontaneous
  Country: US (occurrence: US)
  Receive Date: 20140307
  Receipt Date: 20140414
  Transmission Date: 20141212
  Serious: No
  Sender: FDA-Public Use
  Company Number: US-GILEAD-2014-0096065

PATIENT
  Sex: Female

DRUGS (17)
  1. SOVALDI [Suspect]
     Indication: HEPATITIS C
     Route: 065
  2. PEGINTERFERON [Suspect]
     Indication: HEPATITIS C
     Route: 065
  3. RIBAVIRIN [Suspect]
     Indication: HEPATITIS C
     Route: 065
  4. ADVIL                              /00044201/ [Concomitant]
  5. METOPROLOL [Concomitant]
  6. LEVOTHYROXINE [Concomitant]
  7. POTASSIUM [Concomitant]
  8. FUROSEMIDE [Concomitant]
  9. METFORMIN [Concomitant]
  10. OMEPRAZOLE [Concomitant]
  11. GABAPENTIN [Concomitant]
  12. CLONIDINE [Concomitant]
  13. BUSPAR [Concomitant]
  14. VALSARTAN [Concomitant]
  15. GLIMEPIRIDE [Concomitant]
  16. KEPPRA [Concomitant]
  17. AMLODIPINE [Concomitant]

REACTIONS (1)
  - Hypersensitivity [Recovered/Resolved]
